FAERS Safety Report 4998185-1 (Version None)
Quarter: 2006Q2

REPORT INFORMATION
  Report Type: 
  Country: None (occurrence: None)
  Receive Date: 20060510
  Receipt Date: 20051128
  Transmission Date: 20061013
  Serious: Yes (Death, Hospitalization)
  Sender: FDA-Public Use
  Company Number: US-MERCK-0511USA04404

PATIENT
  Age: 58 Year
  Sex: Male
  Weight: 75 kg

DRUGS (2)
  1. VIOXX [Suspect]
     Indication: ARTHRITIS
     Route: 048
     Dates: start: 19990101, end: 20031021
  2. ASPIRIN [Concomitant]
     Route: 065

REACTIONS (4)
  - CARDIAC ARREST [None]
  - DYSPNOEA [None]
  - HYPERTENSION [None]
  - MYOCARDIAL INFARCTION [None]
